FAERS Safety Report 7972878-6 (Version None)
Quarter: 2011Q4

REPORT INFORMATION
  Report Type: 
  Country: None (occurrence: None)
  Receive Date: 20111213
  Receipt Date: 20111206
  Transmission Date: 20120403
  Serious: Yes (Other)
  Sender: FDA-Public Use
  Company Number: US-UCBSA-047267

PATIENT
  Age: 31 Year
  Sex: Female
  Weight: 45.4 kg

DRUGS (3)
  1. VIMPAT [Suspect]
     Indication: CONVULSION
     Route: 048
     Dates: start: 20110912, end: 20110923
  2. KLONOPIN [Concomitant]
     Indication: CONVULSION
     Dosage: VARIOUS DOSE
     Route: 048
  3. KEPPRA [Suspect]
     Indication: CONVULSION
     Dosage: 1000 MG EVERY MORNING AND 1500 MG EVERY AFTERNOON
     Route: 048

REACTIONS (3)
  - CONVULSION [None]
  - DYSPHEMIA [None]
  - CONFUSIONAL STATE [None]
